FAERS Safety Report 8317885-9 (Version None)
Quarter: 2012Q2

REPORT INFORMATION
  Report Type: 
  Country: None (occurrence: None)
  Receive Date: 20120427
  Receipt Date: 20111031
  Transmission Date: 20120825
  Serious: No
  Sender: FDA-Public Use
  Company Number: US-MYLANLABS-2011S1022530

PATIENT
  Age: 66 Year
  Sex: Female

DRUGS (2)
  1. METHIMAZOLE [Suspect]
     Route: 048
     Dates: start: 20111030, end: 20111031
  2. METHIMAZOLE [Suspect]
     Indication: HYPERTHYROIDISM
     Route: 048
     Dates: start: 20110919, end: 20110101

REACTIONS (1)
  - INFECTION [None]
